FAERS Safety Report 8998226 (Version 3)
Quarter: 2014Q1

REPORT INFORMATION
  Report Type: Spontaneous
  Country: US (occurrence: US)
  Receive Date: 20130104
  Receipt Date: 20140228
  Transmission Date: 20141002
  Serious: Yes (Hospitalization, Other)
  Sender: FDA-Public Use
  Company Number: US-VERTEX PHARMACEUTICALS INC.-2013-000081

PATIENT
  Age: 58 Year
  Sex: Male

DRUGS (10)
  1. INCIVEK [Suspect]
     Indication: CHRONIC HEPATITIS C
     Dosage: 750 MG, TID
     Route: 048
     Dates: start: 20121001, end: 20121210
  2. RIBAVIRIN [Suspect]
     Indication: CHRONIC HEPATITIS C
     Dosage: 1200 MG, BID
     Route: 048
     Dates: start: 20121001, end: 20121217
  3. PEGASYS [Suspect]
     Indication: CHRONIC HEPATITIS C
     Dosage: 180 ?G, QW
     Route: 058
     Dates: start: 20120924, end: 20121210
  4. METHADONE HCL [Concomitant]
     Dosage: UNK
     Dates: start: 1991
  5. ATARAX [Concomitant]
     Dosage: UNK
     Dates: start: 20121008
  6. ZOFRAN [Concomitant]
     Dosage: UNK
     Dates: start: 20121008
  7. LASIX [Concomitant]
     Dosage: UNK
  8. HYDROXYZINE [Concomitant]
  9. ONDANSETRON [Concomitant]
  10. FUROSEMIDE [Concomitant]
     Dosage: 20 MG, UNK

REACTIONS (9)
  - Anaemia [Recovered/Resolved]
  - Dizziness [Unknown]
  - Gait disturbance [Unknown]
  - White blood cell count decreased [Unknown]
  - Fatigue [Unknown]
  - Nausea [Unknown]
  - Vomiting [Unknown]
  - Jaundice [Unknown]
  - Platelet count decreased [Unknown]
